FAERS Safety Report 7509211-X (Version None)
Quarter: 2011Q2

REPORT INFORMATION
  Report Type: 
  Country: None (occurrence: None)
  Receive Date: 20110527
  Receipt Date: 20110517
  Transmission Date: 20111010
  Serious: Yes (Other)
  Sender: FDA-Public Use
  Company Number: CH-JNJFOC-20110507616

PATIENT
  Sex: Male

DRUGS (8)
  1. SIMVASTATIN [Concomitant]
     Dosage: AT NIGHT
     Route: 065
  2. LEVEMIR [Concomitant]
     Indication: DIABETES MELLITUS
     Dosage: 20-30 U.I/DAY
     Route: 065
  3. AMLODIPINE [Concomitant]
     Route: 065
  4. ECONAZOLE NITRATE [Suspect]
     Indication: FUNGAL INFECTION
     Route: 003
     Dates: start: 20110301, end: 20110504
  5. GLICLAZIDE [Concomitant]
     Indication: DIABETES MELLITUS
     Route: 048
  6. CLOPIDOGREL [Concomitant]
     Dosage: PER DAY
     Route: 065
  7. ZESTORETIC [Concomitant]
     Route: 065
  8. PANTOPRAZOL [Concomitant]
     Route: 065

REACTIONS (2)
  - ECZEMA [None]
  - PYREXIA [None]
